FAERS Safety Report 4432669-X (Version None)
Quarter: 2004Q3

REPORT INFORMATION
  Report Type: 
  Country: None (occurrence: None)
  Receive Date: 20040820
  Receipt Date: 20040406
  Transmission Date: 20050211
  Serious: Yes (Hospitalization)
  Sender: FDA-Public Use
  Company Number: US_031299593

PATIENT
  Age: 58 Year
  Sex: Male
  Weight: 82 kg

DRUGS (4)
  1. HUMATROPE [Suspect]
     Indication: HYPOPITUITARISM
     Dosage: 0.25 MG/1 DAY
  2. LEVOTHYROXINE SODIUM [Concomitant]
  3. TESTOSTERONE [Concomitant]
  4. ADVAIR DISKUS 100/50 [Concomitant]

REACTIONS (5)
  - BLOOD CREATININE INCREASED [None]
  - MALIGNANT FIBROUS HISTIOCYTOMA [None]
  - MASS [None]
  - NEURILEMMOMA BENIGN [None]
  - RETROPERITONEAL NEOPLASM [None]
